FAERS Safety Report 7430337-3 (Version None)
Quarter: 2011Q2

REPORT INFORMATION
  Report Type: 
  Country: None (occurrence: None)
  Receive Date: 20110421
  Receipt Date: 20100719
  Transmission Date: 20111010
  Serious: No
  Sender: FDA-Public Use
  Company Number: US-ASTRAZENECA-2010SE36571

PATIENT
  Sex: Male

DRUGS (4)
  1. TOPROL-XL [Suspect]
     Route: 048
  2. TOPROL-XL [Suspect]
     Route: 048
  3. INSULIN PUMP [Concomitant]
  4. IMDUR [Concomitant]

REACTIONS (5)
  - DIABETES MELLITUS [None]
  - CORONARY ARTERY DISEASE [None]
  - RENAL DISORDER [None]
  - HYPOGLYCAEMIA [None]
  - PERIPHERAL VASCULAR DISORDER [None]
